FAERS Safety Report 5244297-7 (Version None)
Quarter: 2007Q1

REPORT INFORMATION
  Report Type: 
  Country: None (occurrence: None)
  Receive Date: 20070222
  Receipt Date: 20070215
  Transmission Date: 20070707
  Serious: Yes (Death)
  Sender: FDA-Public Use
  Company Number: US-ROCHE-479702

PATIENT
  Sex: Male

DRUGS (1)
  1. PEGASYS [Suspect]
     Indication: DRUG USE FOR UNKNOWN INDICATION
     Dosage: HE RECEIVED ONE SHOT.
     Route: 065
     Dates: end: 20061215

REACTIONS (2)
  - DEPRESSION [None]
  - SLEEP APNOEA SYNDROME [None]
